FAERS Safety Report 19266772 (Version 2)
Quarter: 2021Q2

REPORT INFORMATION
  Report Type: Spontaneous
  Country: US (occurrence: US)
  Receive Date: 20210517
  Receipt Date: 20210611
  Transmission Date: 20210717
  Serious: No
  Sender: FDA-Public Use
  Company Number: US-BAYER-2021-141059

PATIENT
  Age: 6 Year
  Sex: Male

DRUGS (4)
  1. UNIVERSAL EYE DROP [Concomitant]
  2. NASAL SPRAY II [Concomitant]
  3. CLARITIN [Suspect]
     Active Substance: LORATADINE
     Indication: HYPERSENSITIVITY
     Dosage: 1 DF
     Dates: start: 202005
  4. CLARITIN [Suspect]
     Active Substance: LORATADINE
     Indication: NASOPHARYNGITIS
     Dosage: 1 DF, BID

REACTIONS (5)
  - Insomnia [None]
  - Head titubation [Not Recovered/Not Resolved]
  - Irritability [Not Recovered/Not Resolved]
  - Extra dose administered [None]
  - Abnormal behaviour [Not Recovered/Not Resolved]

NARRATIVE: CASE EVENT DATE: 202005
